FAERS Safety Report 6025075-8 (Version None)
Quarter: 2008Q4

REPORT INFORMATION
  Report Type: 
  Country: None (occurrence: None)
  Receive Date: 20081224
  Receipt Date: 20081208
  Transmission Date: 20090506
  Serious: Yes (Congenital Anomaly)
  Sender: FDA-Public Use
  Company Number: 8040362

PATIENT

DRUGS (2)
  1. KEPPRA [Suspect]
     Indication: EPILEPSY
     Dosage: 1000 MG 2/D TRP
     Route: 064
  2. EPILIM [Suspect]
     Indication: EPILEPSY
     Dosage: 500 MG 2/D TRP
     Route: 064

REACTIONS (5)
  - ARACHNOID CYST [None]
  - CEREBRAL VENTRICLE DILATATION [None]
  - MATERNAL DRUGS AFFECTING FOETUS [None]
  - OPTIC ATROPHY [None]
  - OPTIC NERVE HYPOPLASIA [None]
